FAERS Safety Report 16732042 (Version 3)
Quarter: 2019Q3

REPORT INFORMATION
  Report Type: Report from Study
  Country: DE (occurrence: DE)
  Receive Date: 20190822
  Receipt Date: 20190905
  Transmission Date: 20191005
  Serious: Yes (Hospitalization)
  Sender: FDA-Public Use
  Company Number: DE-SHIRE-DE201922742

PATIENT

DRUGS (2)
  1. TEDUGLUTIDE [Suspect]
     Active Substance: TEDUGLUTIDE
     Dosage: 0.38 MILLIGRAM, 1.25 MG, 1X/DAY:QD
     Route: 058
     Dates: start: 20190816
  2. TEDUGLUTIDE [Suspect]
     Active Substance: TEDUGLUTIDE
     Indication: SHORT-BOWEL SYNDROME
     Dosage: 0.38 MILLILITRE, 1.25 MILLIGRAM, 1X/DAY:QD
     Route: 058
     Dates: start: 20190705

REACTIONS (4)
  - Stoma complication [Recovered/Resolved]
  - Abdominal pain [Recovered/Resolved]
  - Weight decreased [Unknown]
  - Stoma site inflammation [Recovering/Resolving]

NARRATIVE: CASE EVENT DATE: 20190710
